FAERS Safety Report 11169486 (Version 1)
Quarter: 2015Q2

REPORT INFORMATION
  Report Type: Spontaneous
  Country: CA (occurrence: CA)
  Receive Date: 20150605
  Receipt Date: 20150605
  Transmission Date: 20150821
  Serious: Yes (Hospitalization, Other)
  Sender: FDA-Public Use
  Company Number: CA-GILEAD-2015-0156547

PATIENT
  Sex: Female

DRUGS (2)
  1. CAYSTON [Suspect]
     Active Substance: AZTREONAM
     Indication: PRODUCT USED FOR UNKNOWN INDICATION
     Dosage: UNK
     Route: 065
  2. CAYSTON [Suspect]
     Active Substance: AZTREONAM
     Dosage: UNK
     Route: 065

REACTIONS (2)
  - Liquid product physical issue [Unknown]
  - Pneumonia [Unknown]
